FAERS Safety Report 6289431-5 (Version None)
Quarter: 2009Q3

REPORT INFORMATION
  Report Type: 
  Country: None (occurrence: None)
  Receive Date: 20090730
  Receipt Date: 20090728
  Transmission Date: 20100115
  Serious: Yes (Hospitalization)
  Sender: FDA-Public Use
  Company Number: US-BRISTOL-MYERS SQUIBB COMPANY-14718860

PATIENT
  Age: 76 Year
  Sex: Female
  Weight: 91 kg

DRUGS (6)
  1. METOPROLOL TARTRATE [Suspect]
     Indication: PROPHYLAXIS
     Route: 048
     Dates: start: 20080101
  2. PLAVIX [Suspect]
     Indication: PROPHYLAXIS
     Route: 048
     Dates: start: 20080101
  3. ASPIRIN [Concomitant]
     Route: 048
     Dates: start: 20080101
  4. MAGNESIUM [Concomitant]
     Route: 048
     Dates: start: 20090501
  5. CRESTOR [Concomitant]
     Dosage: BEGUN AGAIN 3 WEEKS AGO
     Route: 048
  6. LIPITOR [Concomitant]

REACTIONS (4)
  - DYSPNOEA [None]
  - EYE HAEMORRHAGE [None]
  - OEDEMA PERIPHERAL [None]
  - RETINAL ANEURYSM [None]
